FAERS Safety Report 8613209-8 (Version None)
Quarter: 2012Q3

REPORT INFORMATION
  Report Type: 
  Country: None (occurrence: None)
  Receive Date: 20120822
  Receipt Date: 20120815
  Transmission Date: 20120928
  Serious: Yes (Hospitalization)
  Sender: FDA-Public Use
  Company Number: US-BAXTER-2012BAX010541

PATIENT
  Sex: Female
  Weight: 50.394 kg

DRUGS (10)
  1. ENALAPRIL HCT [Concomitant]
     Route: 048
  2. HUMALOG [Concomitant]
     Dosage: SLIDING SCALE
     Route: 058
  3. GAMMAGARD LIQUID [Suspect]
     Route: 042
     Dates: start: 20101022
  4. CIPROFLOXACIN [Suspect]
  5. LANTUS [Concomitant]
     Dosage: 25 UNITS
     Route: 058
  6. ACTIGALL [Concomitant]
     Route: 048
  7. MICROGESTIN FE 1.5/30 [Concomitant]
     Route: 048
  8. LIPITOR [Concomitant]
     Route: 048
  9. REMICADE [Suspect]
     Indication: RHEUMATOID ARTHRITIS
  10. GAMMAGARD LIQUID [Suspect]
     Dosage: 10 GRAMS OVER 5 HOURS
     Route: 042
     Dates: start: 20120406

REACTIONS (5)
  - HAEMOLYTIC ANAEMIA [None]
  - FATIGUE [None]
  - JAUNDICE [None]
  - HYPERBILIRUBINAEMIA [None]
  - TACHYCARDIA [None]
